FAERS Safety Report 5622537-X (Version None)
Quarter: 2008Q1

REPORT INFORMATION
  Report Type: 
  Country: None (occurrence: None)
  Receive Date: 20080211
  Receipt Date: 20080211
  Transmission Date: 20080703
  Serious: Yes (Hospitalization)
  Sender: FDA-Public Use
  Company Number: US-BAXTER-2008BH001002

PATIENT
  Sex: Male
  Weight: 154 kg

DRUGS (18)
  1. HEPARIN SODIUM [Suspect]
     Indication: THROMBOSIS PROPHYLAXIS
     Dosage: DOSE UNIT:UNKNOWN
     Route: 040
     Dates: start: 20071210, end: 20071210
  2. HEPARIN SODIUM [Suspect]
     Dosage: DOSE UNIT:UNKNOWN
     Route: 040
     Dates: start: 20071231, end: 20071231
  3. HEPARIN SODIUM [Suspect]
     Dosage: DOSE UNIT:UNKNOWN
     Route: 040
     Dates: start: 20071231, end: 20071231
  4. HEPARIN SODIUM [Suspect]
     Dosage: DOSE UNIT:UNKNOWN
     Route: 040
     Dates: start: 20080103, end: 20080103
  5. HEPARIN SODIUM [Suspect]
     Dosage: DOSE UNIT:UNKNOWN
     Route: 040
     Dates: start: 20080103, end: 20080103
  6. COUMADIN [Suspect]
     Indication: DRUG USE FOR UNKNOWN INDICATION
     Dosage: DOSE UNIT:UNKNOWN
     Route: 065
  7. PLAVIX [Concomitant]
     Indication: THROMBOSIS PROPHYLAXIS
     Route: 065
  8. COUMADIN [Concomitant]
     Route: 065
  9. ADALAT [Concomitant]
     Indication: BLOOD PRESSURE
     Route: 065
  10. LABETELIOL [Concomitant]
     Indication: BLOOD PRESSURE
     Route: 065
  11. LASIX [Concomitant]
     Indication: DRUG USE FOR UNKNOWN INDICATION
     Route: 065
  12. K-PAK [Concomitant]
     Indication: DRUG USE FOR UNKNOWN INDICATION
     Route: 065
  13. MICARDIS [Concomitant]
     Indication: BLOOD PRESSURE
     Route: 065
  14. PRAVASTATIN [Concomitant]
     Indication: BLOOD CHOLESTEROL
     Route: 065
  15. CARDURA [Concomitant]
     Indication: BLOOD PRESSURE
     Route: 065
  16. NEURONTIN [Concomitant]
     Indication: PAIN
     Dosage: DOSE UNIT:UNKNOWN
     Route: 065
  17. PERCOCET [Concomitant]
     Indication: PAIN
     Dosage: DOSE UNIT:UNKNOWN
     Route: 065
  18. MS CONTIN [Concomitant]
     Indication: PAIN
     Dosage: DOSE UNIT:UNKNOWN
     Route: 065

REACTIONS (8)
  - ANOREXIA [None]
  - BLUE TOE SYNDROME [None]
  - CONSTIPATION [None]
  - ERYTHEMA [None]
  - FEELING HOT [None]
  - NAUSEA [None]
  - PAIN IN EXTREMITY [None]
  - VOMITING [None]
